FAERS Safety Report 9408491 (Version 2)
Quarter: 2014Q1

REPORT INFORMATION
  Report Type: Spontaneous
  Country: US (occurrence: US)
  Receive Date: 20130718
  Receipt Date: 20140117
  Transmission Date: 20141002
  Serious: Yes (Hospitalization)
  Sender: FDA-Public Use
  Company Number: US-B.I. PHARMACEUTICALS,INC./RIDGEFIELD-2013-BI-20579BP

PATIENT
  Age: 78 Year
  Sex: Female
  Weight: 68.04 kg

DRUGS (8)
  1. PRADAXA [Suspect]
     Indication: ATRIAL FIBRILLATION
     Dosage: 150 MG
     Dates: start: 20110706, end: 20110720
  2. DESYREL [Concomitant]
  3. DEXILANT [Concomitant]
     Dosage: 60 MG
  4. PEPCID [Concomitant]
     Dosage: 40 MG
  5. PRAVACHOL [Concomitant]
     Dosage: 40 MG
  6. CITALOPRAM [Concomitant]
     Dosage: 40 MG
  7. IRON [Concomitant]
     Dosage: 975 MG
  8. MORPHINE [Concomitant]

REACTIONS (2)
  - Gastrointestinal haemorrhage [Unknown]
  - Anaemia [Unknown]
